FAERS Safety Report 8022203-X (Version None)
Quarter: 2012Q1

REPORT INFORMATION
  Report Type: 
  Country: None (occurrence: None)
  Receive Date: 20120104
  Receipt Date: 20111227
  Transmission Date: 20120608
  Serious: Yes (Other)
  Sender: FDA-Public Use
  Company Number: US-BAYER-2011-099741

PATIENT
  Age: 32 Year
  Sex: Female
  Weight: 83.447 kg

DRUGS (6)
  1. TOPAMAX [Concomitant]
     Indication: MIGRAINE
     Dosage: UNK
     Route: 048
     Dates: start: 20090701
  2. ATENOLOL [Concomitant]
     Indication: HYPERTENSION
     Dosage: UNK
     Route: 048
     Dates: start: 20090801
  3. YAZ [Suspect]
     Indication: CONTRACEPTION
     Dosage: UNK
     Route: 048
     Dates: start: 20080901, end: 20090901
  4. ACETAMINOPHEN W/ CODEINE [Concomitant]
     Dosage: ONE EVERY FOUR HOURS AS NEEDED
     Route: 048
     Dates: start: 20090101
  5. AVELOX [Concomitant]
     Dosage: 400 MG, QD
     Route: 048
     Dates: start: 20090101
  6. PROAIR HFA [Concomitant]
     Dosage: UNK
     Route: 045
     Dates: start: 19950101

REACTIONS (8)
  - ABDOMINAL PAIN [None]
  - EMOTIONAL DISTRESS [None]
  - CHOLECYSTITIS [None]
  - GALLBLADDER DISORDER [None]
  - INJURY [None]
  - ANXIETY [None]
  - DYSPEPSIA [None]
  - PROCEDURAL PAIN [None]
